FAERS Safety Report 6831386-6 (Version None)
Quarter: 2010Q2

REPORT INFORMATION
  Report Type: 
  Country: None (occurrence: None)
  Receive Date: 20100520
  Receipt Date: 20090604
  Transmission Date: 20101027
  Serious: Yes (Other)
  Sender: FDA-Public Use
  Company Number: 2009223854

PATIENT
  Age: 69 Year
  Sex: Female
  Weight: 63 kg

DRUGS (5)
  1. PROVERA [Suspect]
     Indication: HORMONE REPLACEMENT THERAPY
     Dosage: 5 MG, ORAL
     Route: 048
     Dates: start: 19910101
  2. PREMARIN [Suspect]
     Indication: HORMONE REPLACEMENT THERAPY
     Dosage: 1.25 MG; 0.9 MG; 0.625 MG; 0.3 MG
     Dates: start: 19761101, end: 19880101
  3. PREMARIN [Suspect]
     Indication: HORMONE REPLACEMENT THERAPY
     Dosage: 1.25 MG; 0.9 MG; 0.625 MG; 0.3 MG
     Dates: start: 19890101, end: 19990101
  4. PREMARIN [Suspect]
     Indication: HORMONE REPLACEMENT THERAPY
     Dosage: 1.25 MG; 0.9 MG; 0.625 MG; 0.3 MG
     Dates: start: 19990101, end: 20010101
  5. PREMARIN [Suspect]
     Indication: HORMONE REPLACEMENT THERAPY
     Dosage: 1.25 MG; 0.9 MG; 0.625 MG; 0.3 MG
     Dates: start: 20010101, end: 20030101

REACTIONS (1)
  - BREAST CANCER FEMALE [None]
